FAERS Safety Report 14620176 (Version 7)
Quarter: 2019Q2

REPORT INFORMATION
  Report Type: Report from Study
  Country: None (occurrence: DE)
  Receive Date: 20180309
  Receipt Date: 20190516
  Transmission Date: 20190711
  Serious: Yes (Hospitalization, Other)
  Sender: FDA-Public Use
  Company Number: DE-ABBVIE-18P-062-2281812-00

PATIENT
  Age: 63 Year
  Sex: Male

DRUGS (19)
  1. VENETOCLAX. [Suspect]
     Active Substance: VENETOCLAX
     Dosage: CYCLE 2 (RAMP UP 50 MG TO 400 MG). LAST DOSE PRIOR TO SAE ON 28/FEB/2018
     Route: 048
     Dates: end: 20180228
  2. TOREM (TORASEMIDE) [Concomitant]
     Active Substance: TORSEMIDE
     Indication: PRODUCT USED FOR UNKNOWN INDICATION
     Route: 048
  3. CANDESARTAN. [Concomitant]
     Active Substance: CANDESARTAN
     Indication: PRODUCT USED FOR UNKNOWN INDICATION
     Route: 048
  4. PANTOZOL [Concomitant]
     Active Substance: PANTOPRAZOLE SODIUM
     Indication: PRODUCT USED FOR UNKNOWN INDICATION
     Route: 048
     Dates: start: 20180222
  5. VENETOCLAX. [Suspect]
     Active Substance: VENETOCLAX
     Indication: CHRONIC LYMPHOCYTIC LEUKAEMIA
     Dosage: CYCLE 1 (LAST 7 DAYS 20 MG DAILY)
     Route: 048
     Dates: start: 20180222
  6. VENETOCLAX. [Suspect]
     Active Substance: VENETOCLAX
     Dosage: LASE DOSE PRIOR TO SAE ON 10/MAR/2018
     Route: 048
     Dates: end: 20180310
  7. PRADAXA [Concomitant]
     Active Substance: DABIGATRAN ETEXILATE MESYLATE
     Indication: PRODUCT USED FOR UNKNOWN INDICATION
  8. VORICONAZOLE. [Concomitant]
     Active Substance: VORICONAZOLE
     Indication: PRODUCT USED FOR UNKNOWN INDICATION
     Route: 048
     Dates: start: 20190215
  9. TORASEMIDE [Concomitant]
     Active Substance: TORSEMIDE
     Indication: PRODUCT USED FOR UNKNOWN INDICATION
     Route: 048
     Dates: start: 20190423
  10. BISOPROLOL [Concomitant]
     Active Substance: BISOPROLOL
     Indication: PRODUCT USED FOR UNKNOWN INDICATION
     Route: 048
  11. APIXABAN [Concomitant]
     Active Substance: APIXABAN
     Indication: PRODUCT USED FOR UNKNOWN INDICATION
     Route: 048
  12. HYDROCHLOROTHIAZIDE. [Concomitant]
     Active Substance: HYDROCHLOROTHIAZIDE
     Indication: PRODUCT USED FOR UNKNOWN INDICATION
  13. VENETOCLAX. [Suspect]
     Active Substance: VENETOCLAX
     Dosage: MOST RECENT DOSE ON 18/DEC/2018, 200 MG (20 MG,DAILY)
     Route: 048
     Dates: end: 20181218
  14. ALLOPURINOL. [Concomitant]
     Active Substance: ALLOPURINOL
     Indication: PRODUCT USED FOR UNKNOWN INDICATION
     Route: 048
  15. BISOPROLOL [Concomitant]
     Active Substance: BISOPROLOL
     Indication: PRODUCT USED FOR UNKNOWN INDICATION
     Route: 048
  16. IBRUTINIB [Suspect]
     Active Substance: IBRUTINIB
     Indication: CHRONIC LYMPHOCYTIC LEUKAEMIA
     Dosage: DATE OF LAST DOSE PRIOR TO SAE 07/FEB/2018 AND 01/MAR/2018 AT 420 MG (CYCLE 1-15 DAILY)
     Route: 048
     Dates: start: 20180116
  17. OBINUTUZUMAB. [Concomitant]
     Active Substance: OBINUTUZUMAB
     Indication: CHRONIC LYMPHOCYTIC LEUKAEMIA
     Route: 042
     Dates: start: 20180116
  18. DABIGATRAN [Concomitant]
     Active Substance: DABIGATRAN
     Indication: PRODUCT USED FOR UNKNOWN INDICATION
  19. APIXABAN [Concomitant]
     Active Substance: APIXABAN
     Indication: PRODUCT USED FOR UNKNOWN INDICATION
     Route: 048
     Dates: start: 20180407

REACTIONS (9)
  - Dehydration [Not Recovered/Not Resolved]
  - Humerus fracture [Not Recovered/Not Resolved]
  - Cerebral aspergillosis [Not Recovered/Not Resolved]
  - Coordination abnormal [Not Recovered/Not Resolved]
  - Generalised tonic-clonic seizure [Not Recovered/Not Resolved]
  - Cystitis escherichia [Recovered/Resolved]
  - Febrile neutropenia [Not Recovered/Not Resolved]
  - Fall [Not Recovered/Not Resolved]
  - Febrile infection [Not Recovered/Not Resolved]

NARRATIVE: CASE EVENT DATE: 20180207
